FAERS Safety Report 7557433-4 (Version None)
Quarter: 2011Q2

REPORT INFORMATION
  Report Type: 
  Country: None (occurrence: None)
  Receive Date: 20110620
  Receipt Date: 20110607
  Transmission Date: 20111010
  Serious: Yes (Life-Threatening, Hospitalization)
  Sender: FDA-Public Use
  Company Number: US-ROCHE-782739

PATIENT
  Age: 57 Year
  Sex: Female

DRUGS (3)
  1. BEVACIZUMAB [Suspect]
     Indication: CERVIX CARCINOMA
     Dosage: OVER 30-90 MIN ON DAY1, CYCLE: 21 DAYS, LAST DOSE PRIOR TO SAE: 12 OCTOBER 2010
     Route: 042
     Dates: start: 20091211
  2. CISPLATIN [Suspect]
     Indication: CERVIX CARCINOMA
     Dosage: CYCLE: 21 DAYS, ON DAY 1
     Route: 042
     Dates: start: 20091211
  3. PACLITAXEL [Suspect]
     Indication: CERVIX CARCINOMA
     Dosage: OVER 3HRS ON DAY 1, CYCLE: 21 DAYS
     Route: 042
     Dates: start: 20091211

REACTIONS (8)
  - DEVICE RELATED INFECTION [None]
  - URETERIC OBSTRUCTION [None]
  - THROMBOSIS [None]
  - SEPSIS [None]
  - BLOOD CREATININE INCREASED [None]
  - NEUTROPHIL COUNT DECREASED [None]
  - HYPERTENSION [None]
  - HAEMOGLOBIN DECREASED [None]
